FAERS Safety Report 8585602-3 (Version None)
Quarter: 2012Q3

REPORT INFORMATION
  Report Type: 
  Country: None (occurrence: None)
  Receive Date: 20120810
  Receipt Date: 20120802
  Transmission Date: 20120928
  Serious: Yes (Death, Hospitalization)
  Sender: FDA-Public Use
  Company Number: DE-JNJFOC-20120804727

PATIENT
  Sex: Female

DRUGS (3)
  1. XARELTO [Suspect]
     Indication: EMBOLISM VENOUS
     Route: 065
  2. HEPARIN [Concomitant]
     Indication: THROMBOSIS
  3. XARELTO [Suspect]
     Indication: THROMBOSIS
     Route: 065

REACTIONS (2)
  - MUSCLE HAEMORRHAGE [None]
  - DEATH [None]
